FAERS Safety Report 8732752 (Version 2)
Quarter: 2012Q4

REPORT INFORMATION
  Report Type: 
  Country: US (occurrence: US)
  Receive Date: 20120820
  Receipt Date: 20121016
  Transmission Date: 20130627
  Serious: Yes (Other)
  Sender: FDA-Public Use
  Company Number: US-ROCHE-788826

PATIENT
  Age: 20 None
  Sex: Male
  Weight: 59.02 kg

DRUGS (2)
  1. ACCUTANE [Suspect]
     Indication: ACNE
     Route: 048
     Dates: start: 1994, end: 1995
  2. ACCUTANE [Suspect]
     Route: 048
     Dates: start: 199608, end: 199701

REACTIONS (6)
  - Colitis ulcerative [Unknown]
  - Inflammatory bowel disease [Unknown]
  - Emotional distress [Unknown]
  - Injury [Unknown]
  - Intestinal haemorrhage [Unknown]
  - Haemorrhoids [Unknown]
